FAERS Safety Report 9067499 (Version 2)
Quarter: 2013Q4

REPORT INFORMATION
  Report Type: Spontaneous
  Country: GB (occurrence: GB)
  Receive Date: 20130214
  Receipt Date: 20131008
  Transmission Date: 20140711
  Serious: Yes (Other)
  Sender: FDA-Public Use
  Company Number: GB-MYLANLABS-2013S1002427

PATIENT
  Age: 41 Year
  Sex: Female
  Weight: 70 kg

DRUGS (18)
  1. SERTRALINE [Suspect]
     Indication: ANXIETY
     Route: 048
     Dates: start: 20110807
  2. SERTRALINE [Suspect]
     Indication: DEPRESSION
     Route: 048
     Dates: start: 20110807
  3. SERTRALINE [Suspect]
     Indication: POST-TRAUMATIC STRESS DISORDER
     Route: 048
     Dates: start: 20110807
  4. SERTRALINE [Suspect]
     Indication: ANXIETY
     Route: 048
     Dates: start: 20111008, end: 20111108
  5. SERTRALINE [Suspect]
     Indication: DEPRESSION
     Route: 048
     Dates: start: 20111008, end: 20111108
  6. SERTRALINE [Suspect]
     Indication: POST-TRAUMATIC STRESS DISORDER
     Route: 048
     Dates: start: 20111008, end: 20111108
  7. SERTRALINE [Suspect]
     Indication: ANXIETY
     Route: 048
     Dates: start: 20111109, end: 20111117
  8. SERTRALINE [Suspect]
     Indication: DEPRESSION
     Route: 048
     Dates: start: 20111109, end: 20111117
  9. SERTRALINE [Suspect]
     Indication: POST-TRAUMATIC STRESS DISORDER
     Route: 048
     Dates: start: 20111109, end: 20111117
  10. SERTRALINE [Suspect]
     Indication: ANXIETY
     Route: 048
     Dates: start: 20111118, end: 20111201
  11. SERTRALINE [Suspect]
     Indication: DEPRESSION
     Route: 048
     Dates: start: 20111118, end: 20111201
  12. SERTRALINE [Suspect]
     Indication: POST-TRAUMATIC STRESS DISORDER
     Route: 048
     Dates: start: 20111118, end: 20111201
  13. SERTRALINE [Suspect]
     Indication: ANXIETY
     Route: 048
     Dates: end: 20111007
  14. SERTRALINE [Suspect]
     Indication: DEPRESSION
     Route: 048
     Dates: end: 20111007
  15. SERTRALINE [Suspect]
     Indication: POST-TRAUMATIC STRESS DISORDER
     Route: 048
     Dates: end: 20111007
  16. SERTRALINE [Suspect]
     Indication: ANXIETY
  17. SERTRALINE [Suspect]
     Indication: DEPRESSION
  18. SERTRALINE [Suspect]
     Indication: POST-TRAUMATIC STRESS DISORDER

REACTIONS (13)
  - Decreased appetite [Unknown]
  - Cough [Recovered/Resolved]
  - Dyspnoea [Recovered/Resolved]
  - Drug ineffective [Unknown]
  - Dry mouth [Unknown]
  - Emotional distress [Recovered/Resolved]
  - Nightmare [Unknown]
  - Weight decreased [Unknown]
  - Pain [Unknown]
  - Poor quality sleep [Recovered/Resolved]
  - Asphyxia [Recovered/Resolved]
  - Epistaxis [Unknown]
  - Urinary incontinence [Unknown]
